FAERS Safety Report 10714560 (Version 2)
Quarter: 2015Q1

REPORT INFORMATION
  Report Type: Spontaneous
  Country: US (occurrence: US)
  Receive Date: 20150115
  Receipt Date: 20150129
  Transmission Date: 20150721
  Serious: No
  Sender: FDA-Public Use
  Company Number: US-009507513-1501USA005307

PATIENT
  Sex: Female
  Weight: 49.89 kg

DRUGS (1)
  1. CLARITIN [Suspect]
     Active Substance: LORATADINE
     Indication: SEASONAL ALLERGY
     Dosage: 10 MG, ONCE
     Route: 048

REACTIONS (2)
  - Dysphagia [Unknown]
  - Cyanosis [Unknown]
